FAERS Safety Report 4917750-0 (Version None)
Quarter: 2006Q1

REPORT INFORMATION
  Report Type: 
  Country: None (occurrence: None)
  Receive Date: 20060221
  Receipt Date: 20060209
  Transmission Date: 20060701
  Serious: Yes (Disabling)
  Sender: FDA-Public Use
  Company Number: JP-BRISTOL-MYERS SQUIBB COMPANY-13287867

PATIENT
  Age: 42 Year
  Sex: Male

DRUGS (8)
  1. EFAVIRENZ [Suspect]
     Indication: HIV INFECTION
     Route: 048
     Dates: start: 20010514
  2. VIREAD [Suspect]
     Indication: HIV INFECTION
     Route: 048
     Dates: start: 20051108
  3. ZERIT [Concomitant]
  4. VIDEX EC [Concomitant]
  5. ZIAGEN [Concomitant]
  6. BEZATOL SR [Concomitant]
  7. ZIDOVUDINE [Concomitant]
  8. SOMATROPIN [Concomitant]

REACTIONS (1)
  - ALOPECIA [None]
